FAERS Safety Report 11082768 (Version 1)
Quarter: 2015Q2

REPORT INFORMATION
  Report Type: Spontaneous
  Country: US (occurrence: US)
  Receive Date: 20150501
  Receipt Date: 20150501
  Transmission Date: 20150821
  Serious: No
  Sender: FDA-Public Use
  Company Number: US-ABBVIE-14P-163-1262064-00

PATIENT
  Age: 42 Year
  Sex: Male

DRUGS (3)
  1. ANDROGEL [Suspect]
     Active Substance: TESTOSTERONE
     Indication: PRODUCT USED FOR UNKNOWN INDICATION
     Dosage: 1 PUMP DAILY
     Route: 061
     Dates: start: 201311, end: 201401
  2. ANDROGEL [Suspect]
     Active Substance: TESTOSTERONE
     Dosage: 2 PUMPS DAILY
     Route: 061
     Dates: start: 201401, end: 201406
  3. ANDROGEL [Suspect]
     Active Substance: TESTOSTERONE
     Route: 061
     Dates: start: 20140715

REACTIONS (6)
  - Asthenia [Recovering/Resolving]
  - Depression [Recovering/Resolving]
  - Blood testosterone decreased [Recovering/Resolving]
  - Drug dose omission [Recovered/Resolved]
  - Loss of libido [Recovering/Resolving]
  - Fatigue [Recovering/Resolving]

NARRATIVE: CASE EVENT DATE: 201401
